FAERS Safety Report 21612283 (Version 1)
Quarter: 2022Q4

REPORT INFORMATION
  Report Type: Spontaneous
  Country: IT (occurrence: IT)
  Receive Date: 20221118
  Receipt Date: 20221118
  Transmission Date: 20230113
  Serious: Yes (Hospitalization)
  Sender: FDA-Public Use
  Company Number: None

PATIENT
  Age: 44 Year
  Sex: Male
  Weight: 94 kg

DRUGS (1)
  1. ADAKVEO [Suspect]
     Active Substance: CRIZANLIZUMAB-TMCA
     Indication: Sickle cell anaemia with crisis
     Dosage: 5 MG/KG (DA SOOMINISTRARE OGNI 4 SETTIMANE DOPO UNA DOSE DI CARICO ESEGUITA A DISTANZA DI 2 SETTIMAN
     Route: 041

REACTIONS (5)
  - Palatal oedema [Recovered/Resolved]
  - Oral discomfort [Recovered/Resolved]
  - Paraesthesia oral [Recovered/Resolved]
  - Pruritus [Recovered/Resolved]
  - Urticaria [Recovered/Resolved]

NARRATIVE: CASE EVENT DATE: 20220922
